FAERS Safety Report 7776591-X (Version None)
Quarter: 2011Q3

REPORT INFORMATION
  Report Type: 
  Country: None (occurrence: None)
  Receive Date: 20110922
  Receipt Date: 20110908
  Transmission Date: 20111222
  Serious: Yes (Hospitalization)
  Sender: FDA-Public Use
  Company Number: 2011S1000068

PATIENT
  Age: 55 Year
  Sex: Male
  Weight: 80.7403 kg

DRUGS (5)
  1. ANTIHISTAMINES [Concomitant]
  2. PREDNISONE [Suspect]
     Indication: PRODUCT USED FOR UNKNOWN INDICATION
  3. COLCHICINE [Concomitant]
  4. KRYSTEXXA [Suspect]
     Indication: GOUT
     Dosage: 8 MG;X1;IV
     Route: 042
     Dates: start: 20110401, end: 20110801
  5. CORTICOSTEROIDS [Concomitant]

REACTIONS (7)
  - HYPOTHYROIDISM [None]
  - WEIGHT DECREASED [None]
  - DEHYDRATION [None]
  - DIABETES MELLITUS [None]
  - BLOOD URIC ACID INCREASED [None]
  - VISUAL IMPAIRMENT [None]
  - DRUG EFFECT DECREASED [None]
